FAERS Safety Report 5226025-4 (Version None)
Quarter: 2007Q1

REPORT INFORMATION
  Report Type: 
  Country: None (occurrence: None)
  Receive Date: 20070129
  Receipt Date: 20061211
  Transmission Date: 20070707
  Serious: Yes (Other)
  Sender: FDA-Public Use
  Company Number: 06121947

PATIENT
  Age: 59 Year
  Sex: Male

DRUGS (11)
  1. WARFARIN SODIUM TABLETS USP, 5 MG [Suspect]
     Indication: PULMONARY EMBOLISM
     Dosage: 7.5 MG, 5X/WK, ORAL
     Route: 048
  2. WARFARIN SODIUM TABLETS USP, 5 MG [Suspect]
     Indication: PULMONARY EMBOLISM
     Dosage: 7.5 MG, 2X/WK, ORAL
     Route: 048
  3. PREDNISONE (PREDNISONUM) [Concomitant]
  4. GLUCOPHAGE [Concomitant]
  5. CALCIUM (CALCIUM) [Concomitant]
  6. PLAVIX [Concomitant]
  7. ASPIRIN [Concomitant]
  8. LISINOPRIL [Concomitant]
  9. NEURONTIN [Concomitant]
  10. EFFEXOR [Concomitant]
  11. CARDIZEM [Concomitant]

REACTIONS (4)
  - DISORIENTATION [None]
  - DYSPNOEA [None]
  - INTERNATIONAL NORMALISED RATIO DECREASED [None]
  - VISUAL DISTURBANCE [None]
